FAERS Safety Report 22347269 (Version 1)
Quarter: 2023Q2

REPORT INFORMATION
  Report Type: Spontaneous
  Country: ES (occurrence: ES)
  Receive Date: 20230521
  Receipt Date: 20230521
  Transmission Date: 20230721
  Serious: Yes (Hospitalization)
  Sender: FDA-Public Use
  Company Number: ES-AEMPS-1367664

PATIENT
  Age: 93 Year
  Sex: Female

DRUGS (11)
  1. CEFUROXIME [Suspect]
     Active Substance: CEFUROXIME
     Indication: Urinary tract infection
     Dosage: UNK(500.0 MG C/12 H)
     Route: 048
     Dates: start: 20221223
  2. LORAZEPAM CINFA 1 mg TABLETS EFG, 50 tablets [Concomitant]
     Indication: Insomnia
     Dosage: 1 MILLIGRAM, 1.0 MG C/24 H NOC
     Route: 048
     Dates: start: 20100907
  3. FOSAVANCE 70mg/5600UI tablets 4 tablets [Concomitant]
     Indication: Osteoporosis
     Dosage: 70 MILLIGRAM,70.0 MG C/7 DIAS
     Route: 048
     Dates: start: 20190702
  4. ARTEDIL 10 mg TABLETS, 28 tablets [Concomitant]
     Indication: Hypertension
     Dosage: 10.0 MG CE
     Route: 048
     Dates: start: 20110325
  5. DUROGESIC MATRIX 12 micrograms/H TRANSDERMAL PATCHES, 5 patches [Concomitant]
     Indication: Osteoarthritis
     Dosage: UNK(1.0 PARCHE C/72 HORAS)
     Route: 065
     Dates: start: 20200625
  6. PARACETAMOL TARBIS FARMA 1 G TABLETS EFG, 40 tablets [Concomitant]
     Indication: Osteoarthritis
     Dosage: 1 GRAM, TWO TIMES A DAY, 1.0 G C/12 H
     Route: 048
     Dates: start: 20200624
  7. FUROSEMIDE [Concomitant]
     Active Substance: FUROSEMIDE
     Indication: Cardiac failure
     Dosage: 40 MILLIGRAM,40.0 MG A-DE
     Route: 048
     Dates: start: 20221224
  8. OSVICAL D 600 MG/400 IU EFERVESCENT GRANULES, 60 sachets [Concomitant]
     Indication: Osteoporosis
     Dosage: UNK(1.0 SOBRE CE)
     Route: 048
     Dates: start: 20190702
  9. SINTROM [Concomitant]
     Active Substance: ACENOCOUMAROL
     Indication: Atrial fibrillation
     Dosage: UNK(2.0 MG CE)
     Route: 048
     Dates: start: 20140825
  10. CO-DIOVAN 160 mg/12.5 mg FILM-COATED TABLETS, 28 tablets (AL/PVC/PVDC) [Concomitant]
     Indication: Hypertension
     Dosage: UNK(160.0 MG A-DE)
     Route: 048
     Dates: start: 20181222
  11. OMEPRAZOLE CINFA 20 mg GASTRORESISTANT HARD CAPSULES EFG, 56 capsules [Concomitant]
     Indication: Cerebrovascular disorder
     Dosage: 20 MILLIGRAM, 20.0 MG A-DE
     Route: 048
     Dates: start: 20100908

REACTIONS (1)
  - Muscular weakness [Recovered/Resolved]

NARRATIVE: CASE EVENT DATE: 20221227
